FAERS Safety Report 6228277-0 (Version None)
Quarter: 2009Q2

REPORT INFORMATION
  Report Type: 
  Country: None (occurrence: None)
  Receive Date: 20090612
  Receipt Date: 20090603
  Transmission Date: 20091009
  Serious: Yes (Hospitalization)
  Sender: FDA-Public Use
  Company Number: PHHY2009GB22443

PATIENT

DRUGS (2)
  1. EXELON [Suspect]
     Dosage: 4.5 MG, ONCE/SINGLE
     Route: 048
     Dates: start: 20090602
  2. EXELON [Suspect]
     Dosage: 4.5 MG, 1 CAPSULE
     Route: 048
     Dates: start: 20090603

REACTIONS (5)
  - ACCIDENTAL EXPOSURE [None]
  - DIZZINESS [None]
  - DRUG DISPENSING ERROR [None]
  - HYPERHIDROSIS [None]
  - VOMITING [None]
